FAERS Safety Report 6188346-0 (Version None)
Quarter: 2009Q2

REPORT INFORMATION
  Report Type: 
  Country: None (occurrence: None)
  Receive Date: 20090513
  Receipt Date: 20090505
  Transmission Date: 20091009
  Serious: Yes (Other)
  Sender: FDA-Public Use
  Company Number: US-AVENTIS-200913930US

PATIENT
  Sex: Female

DRUGS (2)
  1. LOVENOX [Suspect]
     Dosage: DOSE: 1MG/KG
  2. HEPARIN [Suspect]

REACTIONS (1)
  - CATHETER THROMBOSIS [None]
